FAERS Safety Report 12942339 (Version 1)
Quarter: 2016Q4

REPORT INFORMATION
  Report Type: Spontaneous
  Country: US (occurrence: US)
  Receive Date: 20161114
  Receipt Date: 20161114
  Transmission Date: 20170207
  Serious: No
  Sender: FDA-Public Use
  Company Number: US-PRESTIUM PHARMA-2015RN000089

PATIENT
  Age: 54 Year
  Sex: Female

DRUGS (3)
  1. DENAVIR [Suspect]
     Active Substance: PENCICLOVIR
     Indication: ORAL HERPES
     Dosage: UNK, PRN
     Route: 061
  2. DENAVIR [Suspect]
     Active Substance: PENCICLOVIR
     Dosage: 5 GRAM TUBE, 4 TO 5 TIMES DAILY
     Route: 061
     Dates: start: 201501
  3. DENAVIR [Suspect]
     Active Substance: PENCICLOVIR
     Dosage: 5 GRAMS TUBE, 4 TO 5 TIMES DAILY
     Route: 061
     Dates: start: 201502

REACTIONS (3)
  - Incorrect drug administration duration [Not Recovered/Not Resolved]
  - Product physical consistency issue [Not Recovered/Not Resolved]
  - Drug effect decreased [Not Recovered/Not Resolved]

NARRATIVE: CASE EVENT DATE: 201501
